FAERS Safety Report 14912333 (Version 1)
Quarter: 2018Q2

REPORT INFORMATION
  Report Type: Other
  Country: IT (occurrence: IT)
  Receive Date: 20180518
  Receipt Date: 20180518
  Transmission Date: 20180711
  Serious: Yes (Other)
  Sender: FDA-Public Use
  Company Number: IT-APOTEX-2018AP013615

PATIENT
  Age: 44 Year
  Sex: Male

DRUGS (2)
  1. PLAUNAZIDE [Concomitant]
     Active Substance: HYDROCHLOROTHIAZIDE\OLMESARTAN MEDOXOMIL
     Indication: HYPERTENSION
     Dosage: 1 DF, UNK
     Route: 048
     Dates: start: 20180426, end: 20180427
  2. AMLODIPINA DOC GENERICI COMPRESSE [Suspect]
     Active Substance: AMLODIPINE BESYLATE
     Indication: HYPERTENSION
     Dosage: 1 DF, IN TOTAL
     Route: 048
     Dates: start: 20180426, end: 20180427

REACTIONS (4)
  - Hypertension [Recovering/Resolving]
  - Agitation [Recovering/Resolving]
  - Malaise [Recovering/Resolving]
  - Paraesthesia [Recovering/Resolving]

NARRATIVE: CASE EVENT DATE: 20180426
